FAERS Safety Report 12858508 (Version 4)
Quarter: 2017Q2

REPORT INFORMATION
  Report Type: Report from Study
  Country: GB (occurrence: GB)
  Receive Date: 20161018
  Receipt Date: 20170501
  Transmission Date: 20170830
  Serious: Yes (Other)
  Sender: FDA-Public Use
  Company Number: GB-TAKEDA-2016TEU005207

PATIENT
  Age: 80 Year
  Sex: Male
  Weight: 90 kg

DRUGS (3)
  1. PIOGLITAZONE. [Suspect]
     Active Substance: PIOGLITAZONE
     Indication: COGNITIVE DISORDER
     Dosage: 0.8 MG, QD
     Route: 048
     Dates: start: 20151014
  2. ASPIRIN                            /00002701/ [Concomitant]
     Active Substance: ASPIRIN
     Indication: PROPHYLAXIS
     Dosage: 75 MG, QD
     Route: 048
     Dates: start: 2013
  3. CETRABEN                           /01690401/ [Concomitant]
     Indication: DRY SKIN
     Dosage: UNK
     Route: 061
     Dates: start: 2014

REACTIONS (1)
  - Electrocardiogram QT prolonged [Recovered/Resolved]

NARRATIVE: CASE EVENT DATE: 20161011
